FAERS Safety Report 5077881-4 (Version None)
Quarter: 2006Q3

REPORT INFORMATION
  Report Type: 
  Country: None (occurrence: None)
  Receive Date: 20060720
  Receipt Date: 20051215
  Transmission Date: 20061208
  Serious: Yes (Other)
  Sender: FDA-Public Use
  Company Number: 2006MP000067

PATIENT

DRUGS (1)
  1. AGGRASTAT [Suspect]
     Dosage: SEE IMAGE
     Route: 042

REACTIONS (1)
  - THROMBOCYTOPENIA [None]
